FAERS Safety Report 9552187 (Version 3)
Quarter: 2014Q1

REPORT INFORMATION
  Report Type: Report from Study
  Country: AU (occurrence: AU)
  Receive Date: 20130925
  Receipt Date: 20140324
  Transmission Date: 20141002
  Serious: Yes (Hospitalization)
  Sender: FDA-Public Use
  Company Number: AU-ROCHE-1278873

PATIENT
  Age: 87 Year
  Sex: Male

DRUGS (5)
  1. RANIBIZUMAB [Suspect]
     Indication: AGE-RELATED MACULAR DEGENERATION
     Route: 050
     Dates: start: 20060926
  2. RANIBIZUMAB [Suspect]
     Route: 050
     Dates: start: 20130723
  3. LIPITOR [Concomitant]
  4. ASTRIX [Concomitant]
  5. ASPIRIN [Concomitant]

REACTIONS (5)
  - Pleural effusion [Unknown]
  - Pulmonary oedema [Unknown]
  - Cardiac failure congestive [Recovered/Resolved]
  - Atrial fibrillation [Recovered/Resolved]
  - Delirium [Recovered/Resolved]
